FAERS Safety Report 11269137 (Version 1)
Quarter: 2015Q3

REPORT INFORMATION
  Report Type: Spontaneous
  Country: GB (occurrence: GB)
  Receive Date: 20150714
  Receipt Date: 20150714
  Transmission Date: 20151125
  Serious: Yes (Other)
  Sender: FDA-Public Use
  Company Number: GB-AUROBINDO-AUR-APL-2015-06097

PATIENT
  Age: 77 Year
  Sex: Male
  Weight: 85 kg

DRUGS (2)
  1. FINASTERIDE. [Concomitant]
     Active Substance: FINASTERIDE
     Indication: PRODUCT USED FOR UNKNOWN INDICATION
     Route: 065
  2. RAMIPRIL 2.5MG [Suspect]
     Active Substance: RAMIPRIL
     Indication: CORONARY ARTERY BYPASS
     Dosage: 2.5 MG, ONCE A DAY
     Route: 048
     Dates: start: 20141223

REACTIONS (2)
  - Gynaecomastia [Not Recovered/Not Resolved]
  - Nipple pain [Unknown]

NARRATIVE: CASE EVENT DATE: 20150101
